FAERS Safety Report 5508150-3 (Version None)
Quarter: 2007Q4

REPORT INFORMATION
  Report Type: 
  Country: None (occurrence: None)
  Receive Date: 20071106
  Receipt Date: 20071026
  Transmission Date: 20080405
  Serious: Yes (Hospitalization, Other)
  Sender: FDA-Public Use
  Company Number: DE-PFIZER INC-2007087196

PATIENT
  Sex: Female

DRUGS (5)
  1. GENOTROPIN [Suspect]
     Indication: HYPOPITUITARISM
     Dosage: DAILY DOSE:.6MG-FREQ:DAILY
     Dates: start: 20040422, end: 20050117
  2. GENOTROPIN [Suspect]
     Dosage: DAILY DOSE:.6MG-FREQ:DAILY
     Dates: start: 20060901, end: 20070213
  3. HYDROCORTISONE [Concomitant]
     Route: 048
  4. LEVOTHYROXINE SODIUM [Concomitant]
     Route: 048
  5. DDAVP (NEEDS NO REFRIGERATION) [Concomitant]
     Route: 030

REACTIONS (2)
  - ASTROCYTOMA [None]
  - NEOPLASM RECURRENCE [None]
